FAERS Safety Report 5712232-0 (Version None)
Quarter: 2008Q2

REPORT INFORMATION
  Report Type: 
  Country: None (occurrence: None)
  Receive Date: 20080418
  Receipt Date: 20080403
  Transmission Date: 20081010
  Serious: Yes (Hospitalization)
  Sender: FDA-Public Use
  Company Number: 013527

PATIENT
  Age: 45 Year
  Sex: Male

DRUGS (4)
  1. PRIALT [Suspect]
     Indication: MUSCLE SPASTICITY
     Dosage: /UG, ONCE/DAY, INTRATHECAL; 0.199 UG, ONCE/HOUR,
     Route: 037
     Dates: start: 20080205
  2. PRIALT [Suspect]
     Indication: SPINAL CORD INJURY
     Dosage: /UG, ONCE/DAY, INTRATHECAL; 0.199 UG, ONCE/HOUR,
     Route: 037
     Dates: start: 20080205
  3. TIZANIDINE HCL [Concomitant]
  4. LYRICA [Concomitant]

REACTIONS (4)
  - BRONCHITIS [None]
  - LOBAR PNEUMONIA [None]
  - RESPIRATORY FAILURE [None]
  - UROSEPSIS [None]
